FAERS Safety Report 22655242 (Version 1)
Quarter: 2023Q2

REPORT INFORMATION
  Report Type: Spontaneous
  Country: US (occurrence: US)
  Receive Date: 20230629
  Receipt Date: 20230629
  Transmission Date: 20230722
  Serious: No
  Sender: FDA-Public Use
  Company Number: US-GE HEALTHCARE-2023CSU002697

PATIENT
  Age: 63 Year
  Sex: Female
  Weight: 78.912 kg

DRUGS (2)
  1. OMNIPAQUE [Suspect]
     Active Substance: IOHEXOL
     Indication: Scan
     Dosage: 100 ML, SINGLE
     Route: 042
     Dates: start: 20230224, end: 20230224
  2. OMNIPAQUE [Suspect]
     Active Substance: IOHEXOL
     Indication: Musculoskeletal disorder

REACTIONS (1)
  - Nasal congestion [Recovered/Resolved]

NARRATIVE: CASE EVENT DATE: 20230224
